FAERS Safety Report 14783174 (Version 1)
Quarter: 2018Q2

REPORT INFORMATION
  Report Type: Report from Study
  Country: JP (occurrence: JP)
  Receive Date: 20180420
  Receipt Date: 20180420
  Transmission Date: 20180711
  Serious: Yes (Death, Hospitalization, Other)
  Sender: FDA-Public Use
  Company Number: JP-ELI_LILLY_AND_COMPANY-JP201804003383

PATIENT
  Age: 78 Year
  Sex: Female
  Weight: 34 kg

DRUGS (10)
  1. TAKELDA [Suspect]
     Active Substance: ASPIRIN\LANSOPRAZOLE
     Indication: PRODUCT USED FOR UNKNOWN INDICATION
     Dosage: 100/15MG, DAILY
     Route: 048
     Dates: end: 20171116
  2. PRASUGREL HYDROCHLORIDE [Suspect]
     Active Substance: PRASUGREL HYDROCHLORIDE
     Indication: MYOCARDIAL ISCHAEMIA
     Dosage: 3.75 MG, DAILY
     Route: 048
     Dates: end: 20170722
  3. FRANDOL [Concomitant]
     Active Substance: ISOSORBIDE DINITRATE
     Dosage: UNK UNK, UNKNOWN
     Route: 048
     Dates: end: 20171116
  4. CRESTOR [Concomitant]
     Active Substance: ROSUVASTATIN CALCIUM
     Dosage: UNK UNK, UNKNOWN
     Route: 048
     Dates: end: 20171116
  5. MAGNESIUM OXIDE. [Concomitant]
     Active Substance: MAGNESIUM OXIDE
     Dosage: UNK UNK, UNKNOWN
     Route: 048
     Dates: end: 20171116
  6. HEPARIN [Concomitant]
     Active Substance: HEPARIN SODIUM
     Dosage: 2000 IU, UNK
     Route: 065
  7. ARTIST [Concomitant]
     Active Substance: CARVEDILOL
     Dosage: UNK UNK, UNKNOWN
     Route: 048
     Dates: end: 20171116
  8. BROTIZOLAM [Concomitant]
     Active Substance: BROTIZOLAM
     Dosage: UNK UNK, UNKNOWN
     Route: 048
     Dates: end: 20171116
  9. HEPARIN [Concomitant]
     Active Substance: HEPARIN SODIUM
     Dosage: 8000 IU, UNKNOWN
     Route: 065
  10. TRAPIDIL [Concomitant]
     Active Substance: TRAPIDIL
     Dosage: UNK UNK, UNKNOWN
     Route: 048
     Dates: end: 20171116

REACTIONS (3)
  - Cerebrovascular accident [Unknown]
  - Subdural haematoma [Fatal]
  - Haemorrhage intracranial [Fatal]

NARRATIVE: CASE EVENT DATE: 20171116
